FAERS Safety Report 9232903 (Version 1)
Quarter: 2013Q2

REPORT INFORMATION
  Report Type: Spontaneous
  Country: IT (occurrence: None)
  Receive Date: 20130412
  Receipt Date: 20130412
  Transmission Date: 20140414
  Serious: Yes (Life-Threatening, Hospitalization)
  Sender: FDA-Public Use
  Company Number: FK201301069

PATIENT
  Age: 29 Year
  Sex: Male

DRUGS (2)
  1. ADENOSINE [Suspect]
     Indication: TACHYCARDIA
     Route: 040
  2. FLECAINIDE (FLECAINIDE) [Concomitant]

REACTIONS (3)
  - Respiratory failure [None]
  - Bronchospasm [None]
  - Electrocardiogram QRS complex shortened [None]
